FAERS Safety Report 7183064-4 (Version None)
Quarter: 2010Q4

REPORT INFORMATION
  Report Type: 
  Country: None (occurrence: None)
  Receive Date: 20101222
  Receipt Date: 20091217
  Transmission Date: 20110411
  Serious: No
  Sender: FDA-Public Use
  Company Number: A0835985A

PATIENT
  Age: 61 Year
  Sex: Female

DRUGS (1)
  1. RYTHMOL [Suspect]
     Route: 065

REACTIONS (1)
  - DIARRHOEA [None]
